FAERS Safety Report 11661993 (Version 2)
Quarter: 2015Q4

REPORT INFORMATION
  Report Type: Spontaneous
  Country: US (occurrence: US)
  Receive Date: 20151026
  Receipt Date: 20151123
  Transmission Date: 20160304
  Serious: Yes (Hospitalization)
  Sender: FDA-Public Use
  Company Number: US-ACTELION-A-US2015-126126

PATIENT
  Age: 65 Year
  Sex: Female

DRUGS (3)
  1. OPSUMIT [Suspect]
     Active Substance: MACITENTAN
     Indication: PULMONARY ARTERIAL HYPERTENSION
     Dosage: 10 MG, UNK
     Route: 048
     Dates: start: 20150325, end: 20150930
  2. OPSUMIT [Suspect]
     Active Substance: MACITENTAN
     Dosage: 10 MG, QD
     Route: 048
  3. COUMADIN [Suspect]
     Active Substance: WARFARIN SODIUM
     Indication: PULMONARY HYPERTENSION
     Dosage: UNK
     Route: 065
     Dates: start: 201403

REACTIONS (2)
  - Spontaneous haematoma [Recovering/Resolving]
  - Respiratory arrest [Recovering/Resolving]

NARRATIVE: CASE EVENT DATE: 20150930
